FAERS Safety Report 14319161 (Version 2)
Quarter: 2018Q2

REPORT INFORMATION
  Report Type: Spontaneous
  Country: SE (occurrence: SE)
  Receive Date: 20171222
  Receipt Date: 20180402
  Transmission Date: 20180711
  Serious: Yes (Other)
  Sender: FDA-Public Use
  Company Number: SE-TEVA-2017-SE-834423

PATIENT
  Age: 72 Year
  Sex: Male

DRUGS (7)
  1. INSULIN [Concomitant]
     Active Substance: INSULIN NOS
  2. ACIKLOVIR [Concomitant]
  3. VITAMIN B KOMPLEX [Concomitant]
  4. OMEPRAZOL [Concomitant]
     Active Substance: OMEPRAZOLE
  5. METFORMIN [Concomitant]
     Active Substance: METFORMIN HYDROCHLORIDE
  6. VESANOID [Concomitant]
     Active Substance: TRETINOIN
  7. PHENASEN [Suspect]
     Active Substance: ARSENIC TRIOXIDE
     Route: 041
     Dates: start: 20170515

REACTIONS (2)
  - Muscle atrophy [Recovering/Resolving]
  - Gait disturbance [Unknown]
